FAERS Safety Report 7504454-3 (Version None)
Quarter: 2011Q2

REPORT INFORMATION
  Report Type: 
  Country: None (occurrence: None)
  Receive Date: 20110525
  Receipt Date: 20091122
  Transmission Date: 20111010
  Serious: Yes (Death, Other)
  Sender: FDA-Public Use
  Company Number: US-BAYER-200940265NA

PATIENT
  Age: 53 Year
  Sex: Male

DRUGS (19)
  1. TRASYLOL [Suspect]
     Indication: CORONARY ARTERY BYPASS
     Dosage: UNK
     Route: 042
     Dates: start: 20080525
  2. PREDNISONE [Concomitant]
     Dosage: 20 MG, QD, FOR 2 WEEKS
     Route: 048
  3. LEXAPRO [Concomitant]
     Dosage: 10 MG, PRN
     Route: 048
  4. KLONOPIN [Concomitant]
     Dosage: 2 MG, HS
     Route: 048
  5. XANAX [Concomitant]
     Dosage: 0.5 MG, TID
     Route: 048
  6. NITROSTAT [Concomitant]
     Dosage: UNK UNK, PRN
     Route: 060
  7. REQUIP [Concomitant]
     Dosage: 1 MG, HS
     Route: 048
  8. ZOFRAN [Concomitant]
     Dosage: 8 MG, BID
     Route: 048
  9. DIAZEPAM [Concomitant]
     Dosage: 5 MG, TID
     Route: 048
  10. WELLBUTRIN SR [Concomitant]
     Dosage: 150 MG, QD
     Route: 048
  11. WELCHOL [Concomitant]
     Dosage: 625 MG, BID
     Route: 048
  12. ZAROXOLYN [Concomitant]
     Dosage: 5 MG, QD
     Route: 048
  13. CARVEDILOL [Concomitant]
     Dosage: 25 MG, BID
     Route: 048
  14. PERCOCET [Concomitant]
     Dosage: 1-2 TABLETS TID
     Route: 048
  15. DEMADEX [Concomitant]
     Dosage: 150 MG, QD
     Route: 048
  16. COREG [Concomitant]
     Dosage: 25 MG, QD
     Route: 048
  17. ZETIA [Concomitant]
     Dosage: 10 MG, QD
     Route: 048
  18. AVAPRO [Concomitant]
     Dosage: 150 MG, QD
     Route: 048
  19. ACETAMINOPHEN [Concomitant]
     Dosage: UNK UNK, PRN
     Route: 048

REACTIONS (13)
  - ANHEDONIA [None]
  - RENAL FAILURE [None]
  - PAIN [None]
  - INJURY [None]
  - MULTI-ORGAN FAILURE [None]
  - STRESS [None]
  - DEATH [None]
  - UNEVALUABLE EVENT [None]
  - FEAR [None]
  - ANXIETY [None]
  - RENAL IMPAIRMENT [None]
  - RENAL INJURY [None]
  - EMOTIONAL DISTRESS [None]
